FAERS Safety Report 7831503-5 (Version None)
Quarter: 2011Q4

REPORT INFORMATION
  Report Type: 
  Country: None (occurrence: None)
  Receive Date: 20111021
  Receipt Date: 20111021
  Transmission Date: 20120403
  Serious: Yes (Other)
  Sender: FDA-Public Use
  Company Number: None

PATIENT
  Age: 26 Year
  Sex: Female
  Weight: 58.967 kg

DRUGS (1)
  1. CREST PRO-HEALTH COMPLETE RINSE [Suspect]
     Indication: TOOTH DISCOLOURATION
     Dosage: 2 TEASPOONS
     Route: 048
     Dates: start: 20111016, end: 20111016

REACTIONS (3)
  - PRODUCT LABEL ISSUE [None]
  - GLOSSODYNIA [None]
  - AGEUSIA [None]
